FAERS Safety Report 6298940-4 (Version None)
Quarter: 2009Q3

REPORT INFORMATION
  Report Type: 
  Country: None (occurrence: None)
  Receive Date: 20090806
  Receipt Date: 20090728
  Transmission Date: 20100115
  Serious: Yes (Hospitalization)
  Sender: FDA-Public Use
  Company Number: DE-JNJFOC-20090608408

PATIENT
  Sex: Female
  Weight: 47 kg

DRUGS (1)
  1. CONCERTA [Suspect]
     Indication: DRUG USE FOR UNKNOWN INDICATION
     Route: 048

REACTIONS (5)
  - HYPERVENTILATION [None]
  - ORTHOSTATIC HYPOTENSION [None]
  - PALLOR [None]
  - PRESYNCOPE [None]
  - THROMBOCYTOPENIA [None]
